FAERS Safety Report 17436869 (Version 8)
Quarter: 2020Q2

REPORT INFORMATION
  Report Type: Spontaneous
  Country: US (occurrence: US)
  Receive Date: 20200219
  Receipt Date: 20200605
  Transmission Date: 20200713
  Serious: Yes (Other)
  Sender: FDA-Public Use
  Company Number: US-UNITED THERAPEUTICS-UNT-2020-002739

PATIENT
  Sex: Female
  Weight: 81.63 kg

DRUGS (3)
  1. TYVASO [Suspect]
     Active Substance: TREPROSTINIL
     Indication: PULMONARY ARTERIAL HYPERTENSION
     Dosage: UNK
     Dates: start: 20171226
  2. OPSUMIT [Concomitant]
     Active Substance: MACITENTAN
     Indication: PRODUCT USED FOR UNKNOWN INDICATION
     Dosage: UNK
     Route: 065
  3. TYVASO [Suspect]
     Active Substance: TREPROSTINIL
     Dosage: 18-54 ?G, QID
     Dates: end: 202003

REACTIONS (18)
  - Dyspnoea [Unknown]
  - Hepatic enzyme increased [Not Recovered/Not Resolved]
  - Oxygen saturation decreased [Unknown]
  - Sneezing [Unknown]
  - Nasal congestion [Unknown]
  - Sinus disorder [Unknown]
  - Wheezing [Unknown]
  - Abdominal discomfort [Recovered/Resolved]
  - Blood pressure decreased [Unknown]
  - Constipation [Unknown]
  - Hepatitis [Unknown]
  - Haemoptysis [Unknown]
  - Malaise [Unknown]
  - Nasopharyngitis [Unknown]
  - Flatulence [Unknown]
  - Dizziness [Unknown]
  - Productive cough [Unknown]
  - Hepatic steatosis [Unknown]
